FAERS Safety Report 5188774-6 (Version None)
Quarter: 2006Q4

REPORT INFORMATION
  Report Type: 
  Country: None (occurrence: None)
  Receive Date: 20061215
  Receipt Date: 20061212
  Transmission Date: 20070319
  Serious: Yes (Hospitalization)
  Sender: FDA-Public Use
  Company Number: CIP06002903

PATIENT
  Age: 14 Year
  Sex: Female

DRUGS (3)
  1. ASACOL [Suspect]
     Indication: CROHN'S DISEASE
     Dosage: 800 MG THREE TIMES DAILY, ORAL
     Route: 048
  2. PHENERGAN [Suspect]
  3. PREDNISONE TAB [Concomitant]

REACTIONS (7)
  - CHILLS [None]
  - DELIRIUM [None]
  - GASTROENTERITIS [None]
  - HEADACHE [None]
  - MENTAL STATUS CHANGES [None]
  - PYREXIA [None]
  - VIRAL INFECTION [None]
